FAERS Safety Report 13273180 (Version 9)
Quarter: 2019Q2

REPORT INFORMATION
  Report Type: Spontaneous
  Country: CA (occurrence: CA)
  Receive Date: 20170227
  Receipt Date: 20190510
  Transmission Date: 20190711
  Serious: Yes (Hospitalization, Other)
  Sender: FDA-Public Use
  Company Number: CA-PFIZER INC-2016021110

PATIENT
  Age: 38 Year
  Sex: Male

DRUGS (23)
  1. SOMAVERT [Suspect]
     Active Substance: PEGVISOMANT
     Dosage: ALTERNATING DOSE, DAILY
     Route: 058
     Dates: end: 201711
  2. SOMAVERT [Suspect]
     Active Substance: PEGVISOMANT
     Dosage: 20 MG, DAILY 5X/WEEKL (ON WEEKDAYS)
     Route: 058
     Dates: start: 20171212, end: 2019
  3. TYLENOL EXTRA STRENGTH [Concomitant]
     Active Substance: ACETAMINOPHEN
     Dosage: 600 MG, AS NEEDED (SEVERAL TABLETS ALMOST DAILY)
     Route: 048
  4. SOMAVERT [Suspect]
     Active Substance: PEGVISOMANT
     Indication: ACROMEGALY
     Dosage: 20 MG, (THREE TIMES PER WEEK)
     Route: 058
     Dates: start: 20150616
  5. SANDOSTATIN LAR DEPOT [Concomitant]
     Active Substance: OCTREOTIDE ACETATE
     Dosage: 20 MG, MONTHLY (EVERY 30 DAYS)
     Route: 030
     Dates: start: 2000, end: 2019
  6. TYLENOL EXTRA STRENGTH [Concomitant]
     Active Substance: ACETAMINOPHEN
     Dosage: 2-4 DF, DAILY
     Route: 048
  7. DELATESTRYL [Concomitant]
     Active Substance: TESTOSTERONE ENANTHATE
     Dosage: 100 MG, EVERY FRIDAY
     Route: 030
     Dates: start: 20170804
  8. SOMAVERT [Suspect]
     Active Substance: PEGVISOMANT
     Dosage: 20 MG,  (5X/WEEK)
     Route: 058
  9. SOMAVERT [Suspect]
     Active Substance: PEGVISOMANT
     Dosage: 20 MG, DAILY
     Route: 058
     Dates: start: 20170731
  10. VOLTAREN [Concomitant]
     Active Substance: DICLOFENAC SODIUM
     Indication: ARTHRALGIA
     Dosage: UNK
  11. VOLTAREN [Concomitant]
     Active Substance: DICLOFENAC SODIUM
     Indication: BONE PAIN
  12. SANDOSTATIN [Concomitant]
     Active Substance: OCTREOTIDE ACETATE
     Dosage: 20MG EVERY (Q) 4WEEKS, EVERY 30 DAYS
     Route: 030
     Dates: start: 2001
  13. ASA [Concomitant]
     Active Substance: ASPIRIN
     Dosage: 81 MG, DAILY
     Route: 048
     Dates: start: 2014
  14. TYLENOL EXTRA STRENGTH [Concomitant]
     Active Substance: ACETAMINOPHEN
     Dosage: 8-10 DF, DAILY
     Route: 048
     Dates: start: 201707
  15. TYLENOL EXTRA STRENGTH [Concomitant]
     Active Substance: ACETAMINOPHEN
     Dosage: 650 MG, 2 TO 10 TIMES PER DAY AS NEEDED (PRN)
     Route: 048
  16. CORTEF [Concomitant]
     Active Substance: HYDROCORTISONE
     Dosage: 20 MG, DAILY
     Route: 048
  17. XARELTO [Concomitant]
     Active Substance: RIVAROXABAN
     Dosage: UNK
     Dates: start: 201606
  18. CORTISOL [Concomitant]
     Active Substance: HYDROCORTISONE
     Dosage: UNK
  19. CORTEF [Concomitant]
     Active Substance: HYDROCORTISONE
     Dosage: 30 TO 35MG DAILY ON SOME DAYS
     Route: 048
     Dates: start: 201707
  20. ASPIRIN. [Concomitant]
     Active Substance: ASPIRIN
     Dosage: 81 MG, UNK
     Route: 048
     Dates: start: 2016
  21. SOMAVERT [Suspect]
     Active Substance: PEGVISOMANT
     Dosage: 20 MG, DAILY 5X/WEEKL (ON WEEKDAYS)
     Route: 058
     Dates: start: 20190503
  22. CORTEF [Concomitant]
     Active Substance: HYDROCORTISONE
     Dosage: 20 MG, DAILY(15 MG MORNING, 5 MG 15:00)
  23. DELATESTRYL [Concomitant]
     Active Substance: TESTOSTERONE ENANTHATE
     Dosage: 0.5 ML, WEEKLY(100 MG EVERY WEEK ON FRIDAYS)
     Route: 030

REACTIONS (4)
  - Pulmonary embolism [Recovered/Resolved]
  - Injection site bruising [Unknown]
  - Intentional product misuse [Recovered/Resolved]
  - Drug ineffective [Not Recovered/Not Resolved]

NARRATIVE: CASE EVENT DATE: 2016
